FAERS Safety Report 5173908-X (Version None)
Quarter: 2006Q4

REPORT INFORMATION
  Report Type: 
  Country: None (occurrence: None)
  Receive Date: 20061206
  Receipt Date: 20061128
  Transmission Date: 20070319
  Serious: Yes (Other)
  Sender: FDA-Public Use
  Company Number: SPV1-2006-01550

PATIENT
  Age: 11 Year
  Sex: Male
  Weight: 32.7 kg

DRUGS (3)
  1. DAYTRANA [Suspect]
     Indication: ATTENTION DEFICIT/HYPERACTIVITY DISORDER
     Dosage: 10 MG, TRANSDERMAL
     Route: 062
     Dates: start: 20061015, end: 20061015
  2. STRATTERA [Concomitant]
  3. RITALIN [Concomitant]

REACTIONS (7)
  - CONVULSION [None]
  - DYSKINESIA [None]
  - FLUSHING [None]
  - HYPERHIDROSIS [None]
  - MALAISE [None]
  - NAUSEA [None]
  - SYNCOPE [None]
